FAERS Safety Report 7552074-7 (Version None)
Quarter: 2011Q2

REPORT INFORMATION
  Report Type: 
  Country: None (occurrence: None)
  Receive Date: 20110616
  Receipt Date: 20110602
  Transmission Date: 20111010
  Serious: Yes (Hospitalization, Disabling, Other)
  Sender: FDA-Public Use
  Company Number: BR-BAYER-201017091LA

PATIENT
  Age: 77 Year
  Sex: Female
  Weight: 64 kg

DRUGS (9)
  1. NEXAVAR [Suspect]
     Dosage: 1 TAB TWICE A DAY
     Route: 048
     Dates: start: 20100301
  2. CARDIZEM [Concomitant]
     Indication: UNEVALUABLE EVENT
     Dosage: 80 MG, UNK
     Route: 048
  3. NEXAVAR [Suspect]
     Dosage: 1 TABLET IN THE MORNING AND ONE TABLET AT NIGHT
     Route: 048
  4. DIOVAN [Concomitant]
     Indication: BLOOD PRESSURE ABNORMAL
     Dosage: 2 TABS A DAY, START DATE MORE THAN 10 YEARS AGO
     Route: 048
  5. MODURETIC 5-50 [Concomitant]
     Indication: HYPERTENSION
     Dosage: 1 DF, QD
     Route: 048
     Dates: start: 20110201
  6. CYCLOSPORINE [Concomitant]
     Indication: PROPHYLAXIS AGAINST TRANSPLANT REJECTION
     Dosage: 25 MG, UNK
     Route: 048
  7. OMEPRAZOLE [Concomitant]
     Indication: GASTRIC DISORDER
     Dosage: 25 MG, OM
     Route: 048
     Dates: start: 20030101
  8. NEXAVAR [Suspect]
     Indication: HEPATIC NEOPLASM MALIGNANT
     Dosage: 2 TAB TWICE A DAY
     Route: 048
     Dates: start: 20100201, end: 20100301
  9. ATENOLOL [Concomitant]
     Indication: BLOOD PRESSURE ABNORMAL
     Dosage: 1 TABLET A DAY
     Route: 048

REACTIONS (18)
  - OPTIC NERVE DISORDER [None]
  - VISUAL IMPAIRMENT [None]
  - BALANCE DISORDER [None]
  - ALOPECIA [None]
  - SKIN HYPERTROPHY [None]
  - MUSCULAR WEAKNESS [None]
  - DIZZINESS [None]
  - OEDEMA PERIPHERAL [None]
  - HYPERKERATOSIS [None]
  - PRURITUS [None]
  - SKIN BURNING SENSATION [None]
  - PAIN IN EXTREMITY [None]
  - ISCHAEMIC STROKE [None]
  - HEADACHE [None]
  - BLOOD PRESSURE INCREASED [None]
  - INNER EAR DISORDER [None]
  - INFLAMMATION [None]
  - BURNING SENSATION [None]
